FAERS Safety Report 5888521-6 (Version None)
Quarter: 2008Q3

REPORT INFORMATION
  Report Type: 
  Country: None (occurrence: None)
  Receive Date: 20080918
  Receipt Date: 20080905
  Transmission Date: 20090109
  Serious: No
  Sender: FDA-Public Use
  Company Number: US-B.I. PHARMACEUTICALS,INC./RIDGEFIELD-2008-BP-14097BP

PATIENT
  Age: 85 Year
  Sex: Male

DRUGS (3)
  1. FLOMAX [Suspect]
     Indication: BENIGN PROSTATIC HYPERPLASIA
     Dosage: .8MG
     Route: 048
     Dates: start: 20080801
  2. FLOMAX [Suspect]
     Dosage: .4MG
     Route: 048
     Dates: start: 20050301, end: 20080801
  3. HYDROCORTISONE [Concomitant]
     Indication: ADRENAL DISORDER

REACTIONS (2)
  - DYSURIA [None]
  - LOSS OF CONSCIOUSNESS [None]
